FAERS Safety Report 9964532 (Version 2)
Quarter: 2014Q1

REPORT INFORMATION
  Report Type: Spontaneous
  Country: US (occurrence: US)
  Receive Date: 20140305
  Receipt Date: 20140310
  Transmission Date: 20141002
  Serious: No
  Sender: FDA-Public Use
  Company Number: US-TEVA-466724USA

PATIENT
  Age: 63 Year
  Sex: Male
  Weight: 104.42 kg

DRUGS (7)
  1. AZILECT [Suspect]
     Indication: PARKINSON^S DISEASE
  2. CARBIDOPA W/LEVODOPA [Concomitant]
     Indication: PARKINSON^S DISEASE
  3. PRAMIPEXOLE [Concomitant]
     Indication: PARKINSON^S DISEASE
  4. BLOOD PRESSURE MEDICATION [Concomitant]
     Indication: BLOOD PRESSURE ABNORMAL
  5. TYLENOL [Concomitant]
     Indication: HEADACHE
  6. TYLENOL [Concomitant]
     Indication: PAIN
  7. TYLENOL [Concomitant]
     Indication: PAIN

REACTIONS (4)
  - Therapeutic response unexpected [Not Recovered/Not Resolved]
  - Somnambulism [Unknown]
  - Screaming [Unknown]
  - Dreamy state [Unknown]
